FAERS Safety Report 24856403 (Version 1)
Quarter: 2025Q1

REPORT INFORMATION
  Report Type: Spontaneous
  Country: AU (occurrence: AU)
  Receive Date: 20250117
  Receipt Date: 20250117
  Transmission Date: 20250409
  Serious: Yes (Other)
  Sender: ELI LILLY AND COMPANY
  Company Number: AU-ELI_LILLY_AND_COMPANY-AU202501002694

PATIENT
  Age: 44 Year
  Sex: Male

DRUGS (2)
  1. IXEKIZUMAB [Suspect]
     Active Substance: IXEKIZUMAB
     Indication: Psoriasis
     Route: 065
     Dates: start: 202110, end: 202306
  2. PREGABALIN [Suspect]
     Active Substance: PREGABALIN
     Indication: Sensory loss
     Route: 065

REACTIONS (23)
  - Balance disorder [Unknown]
  - Blood urine present [Recovering/Resolving]
  - Diplopia [Unknown]
  - Eye pain [Not Recovered/Not Resolved]
  - Facial pain [Not Recovered/Not Resolved]
  - Fatigue [Not Recovered/Not Resolved]
  - Gastrointestinal disorder [Unknown]
  - Hepatic cyst [Unknown]
  - Hypoaesthesia [Not Recovered/Not Resolved]
  - Insomnia [Not Recovered/Not Resolved]
  - Lacrimation increased [Unknown]
  - Paraesthesia [Not Recovered/Not Resolved]
  - Visual impairment [Not Recovered/Not Resolved]
  - Periorbital oedema [Unknown]
  - Photopsia [Unknown]
  - Asthenia [Not Recovered/Not Resolved]
  - Renal cyst [Unknown]
  - Trigeminal neuralgia [Unknown]
  - Vomiting [Unknown]
  - Urinary tract infection [Recovering/Resolving]
  - Somnolence [Unknown]
  - Upper respiratory tract infection [Unknown]
  - Nausea [Not Recovered/Not Resolved]

NARRATIVE: CASE EVENT DATE: 20220401
